FAERS Safety Report 16181348 (Version 1)
Quarter: 2019Q2

REPORT INFORMATION
  Report Type: Spontaneous
  Country: US (occurrence: US)
  Receive Date: 20190410
  Receipt Date: 20190410
  Transmission Date: 20190711
  Serious: Yes (Life-Threatening, Hospitalization)
  Sender: FDA-Public Use
  Company Number: US-ELI_LILLY_AND_COMPANY-US201904003708

PATIENT
  Sex: Female

DRUGS (1)
  1. BASAGLAR [Suspect]
     Active Substance: INSULIN GLARGINE
     Indication: TYPE 2 DIABETES MELLITUS
     Dosage: 20 IU, UNKNOWN
     Route: 058

REACTIONS (7)
  - Oesophageal cancer metastatic [Unknown]
  - Colon cancer stage III [Recovering/Resolving]
  - Metastases to stomach [Unknown]
  - Pulmonary mass [Recovering/Resolving]
  - Dysphonia [Recovering/Resolving]
  - Weight decreased [Recovering/Resolving]
  - Pneumothorax [Recovering/Resolving]
